FAERS Safety Report 8859358 (Version 1)
Quarter: 2012Q4

REPORT INFORMATION
  Report Type: Spontaneous
  Country: DE (occurrence: None)
  Receive Date: 20121022
  Receipt Date: 20121022
  Transmission Date: 20130627
  Serious: Yes (Life-Threatening, Hospitalization, Other)
  Sender: FDA-Public Use
  Company Number: ADR-2012-01901

PATIENT
  Sex: Female

DRUGS (2)
  1. BACLOFEN [Suspect]
     Indication: MULTIPLE SCLEROSIS
  2. BACLOFEN [Suspect]
     Indication: SPASTIC PARAPLEGIA

REACTIONS (19)
  - Dizziness [None]
  - Loss of consciousness [None]
  - Respiratory arrest [None]
  - Incorrect route of drug administration [None]
  - Complex partial seizures [None]
  - Convulsion [None]
  - Autonomic nervous system imbalance [None]
  - Hyperthermia [None]
  - No therapeutic response [None]
  - Asthenia [None]
  - Fatigue [None]
  - Lung infection [None]
  - Coma [None]
  - Toxicity to various agents [None]
  - Blood pressure increased [None]
  - Tachycardia [None]
  - Delirium [None]
  - Hallucination [None]
  - Aggression [None]
